FAERS Safety Report 6889853-5 (Version None)
Quarter: 2010Q3

REPORT INFORMATION
  Report Type: 
  Country: None (occurrence: None)
  Receive Date: 20100730
  Receipt Date: 20080520
  Transmission Date: 20110219
  Serious: No
  Sender: FDA-Public Use
  Company Number: US-PFIZER INC-2008043247

PATIENT
  Sex: Female
  Weight: 72.7 kg

DRUGS (5)
  1. LIPITOR [Suspect]
     Indication: BLOOD CHOLESTEROL INCREASED
     Dates: start: 20080401
  2. SOTALOL HCL [Concomitant]
  3. METFORMIN HCL [Concomitant]
  4. LOTREL [Concomitant]
  5. CLONIDINE [Concomitant]

REACTIONS (1)
  - DIARRHOEA [None]
